FAERS Safety Report 9373489 (Version 5)
Quarter: 2013Q3

REPORT INFORMATION
  Report Type: Spontaneous
  Country: CN (occurrence: CN)
  Receive Date: 20130627
  Receipt Date: 20130730
  Transmission Date: 20140515
  Serious: Yes (Other)
  Sender: FDA-Public Use
  Company Number: CN-BRACCO-000474

PATIENT
  Age: 61 Year
  Sex: Female
  Weight: 55 kg

DRUGS (19)
  1. IOPAMIRO [Suspect]
     Indication: ANGIOGRAM
     Route: 013
     Dates: start: 20130619, end: 20130619
  2. IOPAMIRO [Suspect]
     Indication: ANGIOGRAM
     Route: 013
     Dates: start: 20130618, end: 20130618
  3. IOPAMIRO [Suspect]
     Indication: ANEURYSM REPAIR
     Route: 013
     Dates: start: 20130619, end: 20130619
  4. NIMODIPINE [Concomitant]
     Dates: start: 20130619
  5. DECADRON [Concomitant]
     Dates: start: 20130619, end: 20130619
  6. EPHEDRINE [Concomitant]
     Dates: start: 20130619, end: 20130619
  7. MIDAZOLAM [Concomitant]
     Dates: start: 20130619, end: 20130619
  8. PROPOFOL [Concomitant]
     Dates: start: 20130619, end: 20130619
  9. SEVOFLURANE [Concomitant]
     Dates: start: 20130619, end: 20130619
  10. FENTANYL [Concomitant]
  11. SUCCINYLCHOLINE [Concomitant]
     Dates: start: 20130619, end: 20130619
  12. CISATRACURIUM [Concomitant]
     Dates: start: 20130619, end: 20130619
  13. ATROPINE [Concomitant]
     Dates: start: 20130619, end: 20130619
  14. NEOSTIGMINE [Concomitant]
     Dates: start: 20130619, end: 20130619
  15. LIDOCAINE [Concomitant]
     Dates: start: 20130619, end: 20130619
  16. REMIFENTANIL [Concomitant]
     Dates: start: 20130619, end: 20130619
  17. NALOXONE [Concomitant]
     Dates: start: 20130619, end: 20130619
  18. PHENYLEPHRINE [Concomitant]
     Dates: start: 20130619, end: 20130619
  19. LABETALOL [Concomitant]
     Dates: start: 20130619, end: 20130619

REACTIONS (9)
  - Brain oedema [Unknown]
  - Convulsion [Recovered/Resolved]
  - Muscle tightness [Recovered/Resolved]
  - Irritability [Recovered/Resolved]
  - Binocular eye movement disorder [Recovered/Resolved]
  - Mental impairment [Not Recovered/Not Resolved]
  - Tremor [Recovered/Resolved]
  - Muscular weakness [Recovered/Resolved]
  - Rash [Recovered/Resolved]
